FAERS Safety Report 18083020 (Version 1)
Quarter: 2020Q3

REPORT INFORMATION
  Report Type: Spontaneous
  Country: DE (occurrence: DE)
  Receive Date: 20200729
  Receipt Date: 20200729
  Transmission Date: 20201103
  Serious: Yes (Other)
  Sender: FDA-Public Use
  Company Number: DE-PBT-000351

PATIENT
  Age: 73 Year

DRUGS (8)
  1. LETERMOVIR [Interacting]
     Active Substance: LETERMOVIR
     Indication: CYTOMEGALOVIRUS INFECTION
     Dosage: 240 MG BID
     Route: 065
  2. VALGANCICLOVIR. [Suspect]
     Active Substance: VALGANCICLOVIR
     Indication: ANTIVIRAL PROPHYLAXIS
     Route: 048
  3. MYCOPHENOLATE MOFETIL. [Suspect]
     Active Substance: MYCOPHENOLATE MOFETIL
     Indication: PROPHYLAXIS AGAINST TRANSPLANT REJECTION
     Route: 065
  4. VALGANCICLOVIR. [Suspect]
     Active Substance: VALGANCICLOVIR
     Indication: ANTIVIRAL PROPHYLAXIS
     Dosage: AT ESCALATED DOSE
     Route: 048
  5. PREDNISOLONE. [Suspect]
     Active Substance: PREDNISOLONE
     Indication: PROPHYLAXIS AGAINST TRANSPLANT REJECTION
     Route: 065
  6. GANCICLOVIR. [Suspect]
     Active Substance: GANCICLOVIR
     Indication: CYTOMEGALOVIRUS TEST POSITIVE
     Route: 042
  7. TACROLIMUS. [Suspect]
     Active Substance: TACROLIMUS
     Indication: PROPHYLAXIS AGAINST TRANSPLANT REJECTION
     Route: 065
  8. TACROLIMUS. [Interacting]
     Active Substance: TACROLIMUS
     Indication: PROPHYLAXIS AGAINST TRANSPLANT REJECTION
     Dosage: LESS THAN 3 MG BID
     Route: 065

REACTIONS (7)
  - Drug ineffective [Unknown]
  - Cytomegalovirus infection [Recovered/Resolved]
  - Drug interaction [Unknown]
  - Leukopenia [Unknown]
  - Drug level increased [Unknown]
  - Diarrhoea [Unknown]
  - Complications of transplanted kidney [Not Recovered/Not Resolved]
